FAERS Safety Report 20591310 (Version 5)
Quarter: 2022Q4

REPORT INFORMATION
  Report Type: Report from Study
  Country: KR (occurrence: KR)
  Receive Date: 20220314
  Receipt Date: 20221007
  Transmission Date: 20230113
  Serious: Yes (Other)
  Sender: FDA-Public Use
  Company Number: KR-NOVARTISPH-NVSC2022KR058055

PATIENT
  Age: 60 Year
  Sex: Female

DRUGS (9)
  1. BEOVU [Suspect]
     Active Substance: BROLUCIZUMAB-DBLL
     Indication: Neovascular age-related macular degeneration
     Dosage: 6 MG, ONCE/SINGLE
     Route: 031
     Dates: start: 20220119, end: 20220119
  2. LEVOFLOXACIN [Concomitant]
     Active Substance: LEVOFLOXACIN
     Indication: Evidence based treatment
     Dosage: 1 DRP, 3 (OPHTHALMIC SOLUTION) (EYE DROP)
     Route: 065
     Dates: start: 20220119, end: 20220121
  3. TROPHERINE [Concomitant]
     Indication: Mydriasis
     Dosage: UNK
     Route: 065
     Dates: start: 20220119, end: 20220119
  4. TROPHERINE [Concomitant]
     Dosage: UNK
     Route: 065
     Dates: start: 20220209, end: 20220209
  5. TROPHERINE [Concomitant]
     Dosage: UNK
     Route: 065
     Dates: start: 20220216, end: 20220216
  6. TROPHERINE [Concomitant]
     Dosage: 1 DRP, ONCE/SINGLE
     Route: 065
  7. TROPHERINE [Concomitant]
     Dosage: UNK
     Route: 065
     Dates: start: 20220302, end: 20220302
  8. PARACAINE [Concomitant]
     Active Substance: PROPARACAINE HYDROCHLORIDE
     Indication: Anaesthesia
     Dosage: UNK
     Route: 065
     Dates: start: 20220119, end: 20220119
  9. PARACAINE [Concomitant]
     Active Substance: PROPARACAINE HYDROCHLORIDE
     Dosage: 1 DRP, ONCE/SINGLE
     Route: 065

REACTIONS (6)
  - Retinal vasculitis [Recovered/Resolved]
  - Idiopathic orbital inflammation [Recovered/Resolved]
  - Visual acuity reduced [Unknown]
  - Vision blurred [Unknown]
  - Ocular hyperaemia [Unknown]
  - Vitreal cells [Unknown]

NARRATIVE: CASE EVENT DATE: 20220209
